FAERS Safety Report 19357849 (Version 2)
Quarter: 2021Q2

REPORT INFORMATION
  Report Type: Spontaneous
  Country: ZA (occurrence: ZA)
  Receive Date: 20210531
  Receipt Date: 20210609
  Transmission Date: 20210717
  Serious: Yes (Other)
  Sender: FDA-Public Use
  Company Number: ZA-009507513-2105ZAF007234

PATIENT
  Sex: Female

DRUGS (5)
  1. KEYTRUDA [Suspect]
     Active Substance: PEMBROLIZUMAB
     Indication: UTERINE CANCER
  2. LEVOTHYROXIN [Concomitant]
     Active Substance: LEVOTHYROXINE
  3. OXYPLASTIN [Concomitant]
  4. LENVIMA [Concomitant]
     Active Substance: LENVATINIB
  5. ELIQUIS [Concomitant]
     Active Substance: APIXABAN

REACTIONS (4)
  - Pleural effusion [Recovering/Resolving]
  - Thrombosis [Recovering/Resolving]
  - Blood albumin decreased [Recovering/Resolving]
  - Haemoglobin decreased [Recovering/Resolving]
